FAERS Safety Report 6784162-7 (Version None)
Quarter: 2010Q2

REPORT INFORMATION
  Report Type: 
  Country: None (occurrence: None)
  Receive Date: 20100617
  Receipt Date: 20100602
  Transmission Date: 20101027
  Serious: Yes (Hospitalization)
  Sender: FDA-Public Use
  Company Number: JP-002164

PATIENT
  Age: 36 Year
  Sex: Female
  Weight: 93 kg

DRUGS (2)
  1. HUMAN MENOPAUSAL GONADOTROPHIN (HMG) [Suspect]
     Indication: OVULATION INDUCTION
     Dosage: (150 IU INTRAMUSCULAR), (225 IU INTRAMUSCULAR)
     Route: 030
  2. HCG (HCG) [Suspect]
     Indication: OVULATION INDUCTION
     Dosage: (50000 IU INTRAMUSCULAR)
     Route: 030

REACTIONS (8)
  - ANAEMIA [None]
  - DEHYDRATION [None]
  - FIBRIN D DIMER INCREASED [None]
  - GASTRITIS [None]
  - HAEMORRHAGIC ASCITES [None]
  - OVARIAN HYPERSTIMULATION SYNDROME [None]
  - OVARIAN TORSION [None]
  - WHITE BLOOD CELL COUNT INCREASED [None]
